FAERS Safety Report 16893357 (Version 1)
Quarter: 2019Q4

REPORT INFORMATION
  Report Type: Spontaneous
  Country: DE (occurrence: DE)
  Receive Date: 20191008
  Receipt Date: 20191008
  Transmission Date: 20200122
  Serious: Yes (Disabling)
  Sender: FDA-Public Use
  Company Number: DE-TEVA-2019-DE-1117583

PATIENT
  Age: 75 Year
  Sex: Female
  Weight: 83 kg

DRUGS (1)
  1. VANCOMYCIN [Suspect]
     Active Substance: VANCOMYCIN
     Indication: OSTEOMYELITIS
     Dosage: DAILY DOSE: 1000 MG MILLGRAM(S) EVERY 2 DAYS 2 SEPARATED DOSES
     Route: 041
     Dates: start: 20190802, end: 20190806

REACTIONS (1)
  - Hypoacusis [Not Recovered/Not Resolved]

NARRATIVE: CASE EVENT DATE: 20190806
